FAERS Safety Report 10404252 (Version 1)
Quarter: 2014Q1

REPORT INFORMATION
  Report Type: Spontaneous
  Country: US (occurrence: None)
  Receive Date: 20140131
  Receipt Date: 20140131
  Transmission Date: 20141002
  Serious: Yes (Hospitalization)
  Sender: FDA-Public Use
  Company Number: 065186

PATIENT
  Sex: Female
  Weight: 79.3 kg

DRUGS (3)
  1. KEPPRA [Suspect]
     Indication: EPILEPSY
  2. ZARONTIN [Suspect]
     Indication: EPILEPSY
  3. NEURONTIN [Concomitant]

REACTIONS (3)
  - Convulsion [None]
  - Inappropriate schedule of drug administration [None]
  - Incorrect dose administered [None]
